FAERS Safety Report 23478161 (Version 1)
Quarter: 2024Q1

REPORT INFORMATION
  Report Type: Report from Study
  Country: US (occurrence: US)
  Receive Date: 20240204
  Receipt Date: 20240204
  Transmission Date: 20240410
  Serious: No
  Sender: FDA-Public Use
  Company Number: US-EXELIXIS-CABO-23069075

PATIENT
  Sex: Male

DRUGS (9)
  1. CABOMETYX [Suspect]
     Active Substance: CABOZANTINIB S-MALATE
     Indication: Renal cancer
     Dosage: 40 MG
  2. OPDIVO [Concomitant]
     Active Substance: NIVOLUMAB
  3. LISINOPRIL [Concomitant]
     Active Substance: LISINOPRIL
  4. TAMSULOSIN [Concomitant]
     Active Substance: TAMSULOSIN
  5. PSYLLIUM [Concomitant]
     Active Substance: PLANTAGO SEED
  6. LEVOTHYROXINE [Concomitant]
     Active Substance: LEVOTHYROXINE\LEVOTHYROXINE SODIUM
  7. SIMVASTATIN [Concomitant]
     Active Substance: SIMVASTATIN
  8. VITAMINS [Concomitant]
     Active Substance: VITAMINS
  9. FINASTERIDE [Concomitant]
     Active Substance: FINASTERIDE

REACTIONS (10)
  - Thyroid disorder [Unknown]
  - Hair colour changes [Unknown]
  - Fatigue [Unknown]
  - Diarrhoea [Unknown]
  - Decreased appetite [Unknown]
  - Mood swings [Unknown]
  - Heart rate increased [Unknown]
  - Increased tendency to bruise [Unknown]
  - Skin ulcer [Unknown]
  - Blood pressure decreased [Unknown]
